FAERS Safety Report 5453737-X (Version None)
Quarter: 2007Q3

REPORT INFORMATION
  Report Type: 
  Country: None (occurrence: None)
  Receive Date: 20070917
  Receipt Date: 20070914
  Transmission Date: 20080115
  Serious: Yes (Other)
  Sender: FDA-Public Use
  Company Number: US-BRISTOL-MYERS SQUIBB COMPANY-13902531

PATIENT
  Age: 56 Year
  Sex: Male

DRUGS (3)
  1. CISPLATIN [Suspect]
     Indication: OESOPHAGEAL CARCINOMA
     Dosage: ON DAYS 1 AND 8
  2. FLUOROURACIL INJ [Suspect]
     Indication: OESOPHAGEAL CARCINOMA
     Route: 042
  3. RADIOTHERAPY [Concomitant]
     Indication: OESOPHAGEAL CARCINOMA
     Dosage: 1DOSAGE FORM-2GY(TOTAL DOSE 28GY)

REACTIONS (1)
  - PORTAL VENOUS GAS [None]
